FAERS Safety Report 4423706-7 (Version None)
Quarter: 2004Q3

REPORT INFORMATION
  Report Type: 
  Country: None (occurrence: None)
  Receive Date: 20040811
  Receipt Date: 20031003
  Transmission Date: 20050211
  Serious: Yes (Disabling)
  Sender: FDA-Public Use
  Company Number: US-MERCK-0310USA00768

PATIENT
  Sex: Male

DRUGS (1)
  1. ZETIA [Suspect]
     Indication: HYPERCHOLESTEROLAEMIA
     Route: 048
     Dates: start: 20030101, end: 20030101

REACTIONS (8)
  - ASTHENIA [None]
  - FATIGUE [None]
  - INFLUENZA LIKE ILLNESS [None]
  - MUSCLE CRAMP [None]
  - MUSCLE ENZYME INCREASED [None]
  - MYALGIA [None]
  - STRESS SYMPTOMS [None]
  - THINKING ABNORMAL [None]
